FAERS Safety Report 8178321-9 (Version None)
Quarter: 2012Q1

REPORT INFORMATION
  Report Type: 
  Country: None (occurrence: None)
  Receive Date: 20120301
  Receipt Date: 20120224
  Transmission Date: 20120608
  Serious: Yes (Death, Other)
  Sender: FDA-Public Use
  Company Number: JP-PFIZER INC-2011128813

PATIENT
  Age: 85 Year
  Sex: Female

DRUGS (17)
  1. MECOBALAMIN [Concomitant]
  2. RANTAC [Concomitant]
  3. FERROUS CITRATE [Concomitant]
  4. CEFTRIAXONE SODIUM [Concomitant]
  5. AZULFIDINE [Suspect]
  6. ORENCIA [Suspect]
     Indication: RHEUMATOID ARTHRITIS
     Dosage: 500 MG, IVD
     Route: 042
     Dates: start: 20110226
  7. PREDNISOLONE [Concomitant]
     Dosage: UNK
     Dates: end: 20110314
  8. CANDESARTAN CILEXETIL [Concomitant]
  9. EPOGIN [Concomitant]
  10. MOBIC [Concomitant]
  11. AMLODIPINE [Concomitant]
  12. MUCODYNE [Concomitant]
  13. LASIX [Concomitant]
  14. CEROCRAL [Concomitant]
  15. RHEUMATREX [Suspect]
     Indication: RHEUMATOID ARTHRITIS
     Dosage: 2 MG, 1 WEEK
     Dates: end: 20110302
  16. FOLIC ACID [Concomitant]
  17. FOSAMAX [Concomitant]

REACTIONS (2)
  - CARDIAC FAILURE [None]
  - MYELODYSPLASTIC SYNDROME [None]
